FAERS Safety Report 9469728 (Version 1)
Quarter: 2013Q3

REPORT INFORMATION
  Report Type: Spontaneous
  Country: US (occurrence: None)
  Receive Date: 20130820
  Receipt Date: 20130820
  Transmission Date: 20140515
  Serious: Yes (Other)
  Sender: FDA-Public Use
  Company Number: None

PATIENT
  Age: 11 Month
  Sex: Male
  Weight: 10.43 kg

DRUGS (1)
  1. LEVOTHYROXINE [Suspect]
     Indication: CONGENITAL HYPOTHYROIDISM
     Route: 048
     Dates: start: 20120815

REACTIONS (1)
  - Blood thyroid stimulating hormone increased [None]
